FAERS Safety Report 17302417 (Version 6)
Quarter: 2022Q2

REPORT INFORMATION
  Report Type: Report from Study
  Country: GB (occurrence: GB)
  Receive Date: 20200122
  Receipt Date: 20220607
  Transmission Date: 20220721
  Serious: Yes (Other)
  Sender: FDA-Public Use
  Company Number: GB-EMA-DD-20200107-KUMARSINGH_A-094208

PATIENT
  Age: 53 Year
  Sex: Female

DRUGS (15)
  1. PREGABALIN [Suspect]
     Active Substance: PREGABALIN
     Indication: Sedation
     Dosage: UNK
  2. PREGABALIN [Suspect]
     Active Substance: PREGABALIN
     Indication: Neuropathy peripheral
     Dosage: UNK
  3. PREGABALIN [Suspect]
     Active Substance: PREGABALIN
     Dosage: UNK
  4. MAVENCLAD [Suspect]
     Active Substance: CLADRIBINE
     Indication: Multiple sclerosis
     Dosage: (FIRST YEAR 1ST WEEK THERAPY:2 TABLETS(10MG)ON DAY,1 TABLET
     Route: 048
  5. MAVENCLAD [Suspect]
     Active Substance: CLADRIBINE
     Dosage: UNK (FIRST YEAR FIRST WEEK THERAPY: TWO TABLETS (EACH OF 10MG) ON DAY 1 AND ONE TABLET ON DAYS 2 TO
     Route: 048
     Dates: start: 20181001, end: 20181011
  6. MAVENCLAD [Suspect]
     Active Substance: CLADRIBINE
     Dosage: UNK (FIRST YEAR FIRST WEEK THERAPY: TWO TABLETS (EACH OF 10MG) ON DAY 1 AND ONE TABLET ON DAYS 2 TO
     Route: 048
     Dates: start: 20181029, end: 20181108
  7. MAVENCLAD [Suspect]
     Active Substance: CLADRIBINE
     Dosage: (FIRST YEAR 2ND WEEK THERAPY:2TABLETS(EACH 10MG)ON DAY 1AND1 TABLET ON DAY
     Route: 048
  8. MAVENCLAD [Suspect]
     Active Substance: CLADRIBINE
     Dosage: (FIRST YEAR 2ND WEEK THERAPY:2TABLETS(EACH 10MG)ON DAY 1AND1 TABLET ON DAY
     Route: 048
     Dates: start: 20181029
  9. MAVENCLAD [Suspect]
     Active Substance: CLADRIBINE
     Dosage: (FIRST YEAR 1ST WEEK THERAPY:2 TABLETS(10MG)ON DAY,1 TABLET
     Route: 048
     Dates: start: 20181001
  10. MAVENCLAD [Suspect]
     Active Substance: CLADRIBINE
     Dosage: (FIRST YEAR 2ND WEEK THERAPY:2TABLETS(EACH 10MG)ON DAY 1AND1 TABLET ON DAY
     Route: 048
     Dates: start: 20181029, end: 201811
  11. CLONAZEPAM [Concomitant]
     Active Substance: CLONAZEPAM
     Indication: Muscle spasms
     Dosage: 1 DOSAGE FORM, PRN (FREQUENCY - 1  ,AS NECESSARY)
  12. CLONAZEPAM [Concomitant]
     Active Substance: CLONAZEPAM
     Dosage: 1 DOSAGE FORM, PRN (FREQUENCY - 1 ,AS NECESSARY; AS NECESSARY)
  13. FLUTICASONE FUROATE [Concomitant]
     Active Substance: FLUTICASONE FUROATE
     Indication: Product used for unknown indication
     Dosage: UNK
  14. FLUTICASONE FUROATE [Concomitant]
     Active Substance: FLUTICASONE FUROATE
     Dosage: UNK
  15. FLUTICASONE FUROATE [Concomitant]
     Active Substance: FLUTICASONE FUROATE
     Dosage: UNK

REACTIONS (14)
  - Multiple sclerosis [Not Recovered/Not Resolved]
  - Neuropathy peripheral [Not Recovered/Not Resolved]
  - Multiple sclerosis pseudo relapse [Not Recovered/Not Resolved]
  - Sensory loss [Not Recovered/Not Resolved]
  - Stress [Unknown]
  - Blood pressure fluctuation [Not Recovered/Not Resolved]
  - Fine motor skill dysfunction [Not Recovered/Not Resolved]
  - Hangover [Unknown]
  - Weight decreased [Unknown]
  - Balance disorder [Unknown]
  - Feeling abnormal [Not Recovered/Not Resolved]
  - Fatigue [Not Recovered/Not Resolved]
  - Insomnia [Not Recovered/Not Resolved]
  - Dizziness [Not Recovered/Not Resolved]

NARRATIVE: CASE EVENT DATE: 20181001
